FAERS Safety Report 9445989 (Version 1)
Quarter: 2013Q3

REPORT INFORMATION
  Report Type: Spontaneous
  Country: DE (occurrence: DE)
  Receive Date: 20130807
  Receipt Date: 20130807
  Transmission Date: 20140515
  Serious: Yes (Other)
  Sender: FDA-Public Use
  Company Number: DE-MYLANLABS-2013S1016550

PATIENT
  Age: 17 Week
  Sex: Male

DRUGS (1)
  1. SERTRALINE [Suspect]
     Dosage: 50 [MG/D ]/ DIE ERSTEN ZWEI WOCHEN 25 MG/D, AB 26.6.2008 50 MG/D
     Route: 063
     Dates: start: 20080612, end: 20080701

REACTIONS (3)
  - Exposure during breast feeding [Recovered/Resolved]
  - Restlessness [Recovered/Resolved]
  - Frequent bowel movements [Unknown]
